FAERS Safety Report 10450942 (Version 3)
Quarter: 2014Q4

REPORT INFORMATION
  Report Type: Report from Study
  Country: HK (occurrence: HK)
  Receive Date: 20140912
  Receipt Date: 20141016
  Transmission Date: 20150528
  Serious: Yes (Hospitalization)
  Sender: FDA-Public Use
  Company Number: HK-US-EMD SERONO, INC.-7318645

PATIENT
  Age: 24 Year
  Sex: Female

DRUGS (1)
  1. REBIF [Suspect]
     Active Substance: INTERFERON BETA-1A
     Indication: MULTIPLE SCLEROSIS
     Route: 058
     Dates: start: 2007

REACTIONS (5)
  - Palpitations [Unknown]
  - Fear [Unknown]
  - Arrhythmia [Unknown]
  - Vertigo [Unknown]
  - Haemoglobin decreased [Unknown]
